FAERS Safety Report 16880966 (Version 1)
Quarter: 2019Q4

REPORT INFORMATION
  Report Type: Spontaneous
  Country: US (occurrence: US)
  Receive Date: 20191003
  Receipt Date: 20191003
  Transmission Date: 20200122
  Serious: No
  Sender: FDA-Public Use
  Company Number: US-PFIZER INC-2019357104

PATIENT
  Age: 65 Year
  Sex: Female
  Weight: 70.3 kg

DRUGS (9)
  1. ZOCON C [Concomitant]
     Dosage: 20 MG, 1X/DAY(HS)
  2. ZANTAC [Concomitant]
     Active Substance: RANITIDINE HYDROCHLORIDE
     Dosage: 150 MG, 1X/DAY (HS)
  3. ASA [Concomitant]
     Active Substance: ASPIRIN
     Dosage: 81 MG, 1X/DAY (HS)
  4. LEXAPRO [Concomitant]
     Active Substance: ESCITALOPRAM OXALATE
     Dosage: 20 MG, 1X/DAY (HS)
  5. CHANTIX [Suspect]
     Active Substance: VARENICLINE TARTRATE
     Dosage: UNK
  6. ATIVAN [Concomitant]
     Active Substance: LORAZEPAM
     Dosage: UNK (HS)
  7. LOPRESSOR [Concomitant]
     Active Substance: METOPROLOL TARTRATE
     Dosage: 12.5 MG, 1X/DAY (HS)
  8. ATIVAN [Concomitant]
     Active Substance: LORAZEPAM
     Dosage: 1 MG, 1X/DAY (1MG HS)
  9. CHANTIX [Suspect]
     Active Substance: VARENICLINE TARTRATE
     Indication: SMOKING CESSATION THERAPY
     Dosage: 1 MG, 2X/DAY

REACTIONS (3)
  - Abnormal dreams [Unknown]
  - Flatulence [Unknown]
  - Nausea [Not Recovered/Not Resolved]
